FAERS Safety Report 16230493 (Version 2)
Quarter: 2019Q2

REPORT INFORMATION
  Report Type: Spontaneous
  Country: US (occurrence: US)
  Receive Date: 20190423
  Receipt Date: 20190618
  Transmission Date: 20190711
  Serious: Yes (Other)
  Sender: FDA-Public Use
  Company Number: US-SAOL THERAPEUTICS-2019SAO00150

PATIENT
  Sex: Female

DRUGS (1)
  1. LIORESAL [Suspect]
     Active Substance: BACLOFEN
     Indication: MUSCLE SPASTICITY
     Dosage: 929.1 ?G, \DAY
     Route: 037

REACTIONS (7)
  - Cellulitis [Not Recovered/Not Resolved]
  - Arthropathy [Unknown]
  - Peripheral vascular disorder [Not Recovered/Not Resolved]
  - Ankle operation [Recovered/Resolved]
  - Skin injury [Unknown]
  - Wound [Not Recovered/Not Resolved]
  - Impaired healing [Not Recovered/Not Resolved]

NARRATIVE: CASE EVENT DATE: 2008
